FAERS Safety Report 9220992 (Version 2)
Quarter: 2013Q2

REPORT INFORMATION
  Report Type: Spontaneous
  Country: JP (occurrence: JP)
  Receive Date: 20130409
  Receipt Date: 20130422
  Transmission Date: 20140414
  Serious: Yes (Hospitalization)
  Sender: FDA-Public Use
  Company Number: PHHY2013JP033231

PATIENT
  Age: 69 Year
  Sex: Female

DRUGS (1)
  1. ANASTROZOLE [Suspect]
     Dosage: 1 MG, PER DAY
     Route: 048

REACTIONS (3)
  - Glomerulonephritis rapidly progressive [Recovering/Resolving]
  - Renal impairment [Recovering/Resolving]
  - Oedema peripheral [Recovering/Resolving]
